FAERS Safety Report 14954515 (Version 1)
Quarter: 2018Q2

REPORT INFORMATION
  Report Type: Spontaneous
  Country: SE (occurrence: SE)
  Receive Date: 20180530
  Receipt Date: 20180530
  Transmission Date: 20180711
  Serious: Yes (Life-Threatening, Other)
  Sender: FDA-Public Use
  Company Number: SE-BIODELIVERY SCIENCES INTERNATIONAL-2016BDSI0078

PATIENT
  Age: 37 Year
  Sex: Female

DRUGS (7)
  1. ROPIVACAINE [Suspect]
     Active Substance: ROPIVACAINE
     Indication: ANAESTHESIA
     Dosage: TOP UP BOLUS OF 3 + 12 ML ROPIVACAINE
     Route: 008
  2. MISOPROSTOL. [Concomitant]
     Active Substance: MISOPROSTOL
  3. OXYTOCIN. [Concomitant]
     Active Substance: OXYTOCIN
  4. RINGER^S LACTATE SOLUTION [Concomitant]
  5. FENTANYL. [Suspect]
     Active Substance: FENTANYL
     Indication: ANAESTHESIA
     Route: 008
  6. DINOPROSTONE. [Concomitant]
     Active Substance: DINOPROSTONE
  7. PHENYLEPHRINE [Concomitant]
     Active Substance: PHENYLEPHRINE\PHENYLEPHRINE HYDROCHLORIDE

REACTIONS (2)
  - Exposure during pregnancy [Recovered/Resolved]
  - Circulatory collapse [Recovered/Resolved]
